FAERS Safety Report 23162783 (Version 2)
Quarter: 2024Q3

REPORT INFORMATION
  Report Type: Spontaneous
  Country: DE (occurrence: DE)
  Receive Date: 20231109
  Receipt Date: 20240723
  Transmission Date: 20241017
  Serious: Yes (Other)
  Sender: SAMSUNG BIOEPIS
  Company Number: DE-EMA-DD-20230928-225467-163348

PATIENT
  Age: 30 Year
  Sex: Male
  Weight: 67 kg

DRUGS (12)
  1. TRASTUZUMAB [Suspect]
     Active Substance: TRASTUZUMAB
     Indication: Metastases to liver
     Dosage: 48 MG/KG; 12 CYCLICAL
     Route: 065
  2. TRASTUZUMAB [Suspect]
     Active Substance: TRASTUZUMAB
     Indication: Adenocarcinoma gastric
  3. DOCETAXEL [Suspect]
     Active Substance: DOCETAXEL\DOCETAXEL ANHYDROUS
     Indication: Metastases to liver
     Dosage: 50 MG/M2; CYCLIC (FOR 0.5 WEEK, 6 CYCLES), DOSES WERE REDUCED TO 75%?85 MG/M2 BIWEEKLY
     Route: 065
  4. DOCETAXEL [Suspect]
     Active Substance: DOCETAXEL\DOCETAXEL ANHYDROUS
     Indication: Adenocarcinoma gastric
  5. OXALIPLATIN [Suspect]
     Active Substance: OXALIPLATIN
     Indication: Metastases to liver
     Dosage: 85 MG/M2; CYCLIC (FOR 6 CYCLES)?1020 MG/M2 FOR 6 CYCLES, 85MG/M2 BIWEEKLY, DOSES WERE REDUCED TO 75%
     Route: 065
  6. OXALIPLATIN [Suspect]
     Active Substance: OXALIPLATIN
     Indication: Adenocarcinoma gastric
  7. LEUCOVORIN CALCIUM [Suspect]
     Active Substance: LEUCOVORIN CALCIUM
     Indication: Adenocarcinoma gastric
     Dosage: 200 MG/M2; CYCLIC (6CYCLES)
     Route: 065
  8. FLUOROURACIL [Suspect]
     Active Substance: FLUOROURACIL
     Indication: Metastases to liver
     Dosage: 2400 MG/M2; CYCLIC(FOR 24 HR. FOR 6 CYCLES); DOSES WERE REDUCED TO 75%?28800 MG/M2: FOR 6 CYCLES; 2,
     Route: 042
  9. FLUOROURACIL [Suspect]
     Active Substance: FLUOROURACIL
     Indication: Adenocarcinoma gastric
  10. LEUCOVORIN [Suspect]
     Active Substance: LEUCOVORIN\LEUCOVORIN CALCIUM
     Indication: Metastases to liver
     Dosage: 2400 MG/M2, 6 CYCLES; DOSES WERE REDUCED TO 75%?200 MG/M2 BIWEEKLY
     Route: 065
  11. LEUCOVORIN [Suspect]
     Active Substance: LEUCOVORIN\LEUCOVORIN CALCIUM
     Indication: Adenocarcinoma gastric
  12. FILGRASTIM [Concomitant]
     Active Substance: FILGRASTIM
     Indication: Product used for unknown indication
     Dosage: UNKNOWN, ADMINISTERED ON DAYS 4-6
     Route: 058

REACTIONS (14)
  - Tumour lysis syndrome [Unknown]
  - Polyserositis [Recovered/Resolved]
  - Erythema [Unknown]
  - Skin reaction [Unknown]
  - Skin reaction [Unknown]
  - Ascites [Unknown]
  - Haematotoxicity [Unknown]
  - Polyneuropathy [Not Recovered/Not Resolved]
  - Hepatic function abnormal [Recovering/Resolving]
  - Paronychia [Unknown]
  - Onycholysis [Unknown]
  - Product use issue [Unknown]
  - Onychoclasis [Not Recovered/Not Resolved]
  - Alopecia [Not Recovered/Not Resolved]
